FAERS Safety Report 8481809-4 (Version None)
Quarter: 2012Q2

REPORT INFORMATION
  Report Type: 
  Country: None (occurrence: None)
  Receive Date: 20120626
  Receipt Date: 20120626
  Transmission Date: 20120825
  Serious: Yes (Other)
  Sender: FDA-Public Use
  Company Number: None

PATIENT
  Age: 43 Year
  Sex: Female
  Weight: 53.5244 kg

DRUGS (2)
  1. KENALOG [Suspect]
     Indication: POSTOPERATIVE CARE
     Dosage: UNKNOWN UNKNOWN IV DRIP
     Route: 041
     Dates: start: 20120524, end: 20120525
  2. POSSIBLE ANTIBIOTICS [Suspect]

REACTIONS (11)
  - HEADACHE [None]
  - ERYTHEMA [None]
  - VASODILATATION [None]
  - NAUSEA [None]
  - MENTAL IMPAIRMENT [None]
  - VOMITING [None]
  - BALANCE DISORDER [None]
  - SWELLING FACE [None]
  - CUTIS LAXA [None]
  - DIZZINESS POSTURAL [None]
  - MEMORY IMPAIRMENT [None]
